FAERS Safety Report 4616320-1 (Version None)
Quarter: 2005Q1

REPORT INFORMATION
  Report Type: 
  Country: None (occurrence: None)
  Receive Date: 20050321
  Receipt Date: 20041116
  Transmission Date: 20050727
  Serious: Yes (Hospitalization)
  Sender: FDA-Public Use
  Company Number: 2004224982US

PATIENT
  Age: 52 Year
  Sex: Male

DRUGS (10)
  1. IRINOTECAN HCL [Suspect]
     Indication: NON-SMALL CELL LUNG CANCER
     Dosage: (240 MG, CYCLICAL), INTRAVENOUS
     Route: 042
     Dates: start: 20040712
  2. GEMCITABINE (GEMCITABINE) [Suspect]
     Indication: NON-SMALL CELL LUNG CANCER
     Dosage: 2400 MG (CYCLICAL), INTRAVENOUS
     Route: 042
     Dates: start: 20040712
  3. METFORMIN HCL [Suspect]
     Indication: ILL-DEFINED DISORDER
     Dates: start: 20040718, end: 20040718
  4. PROMETHAZINE [Concomitant]
  5. FENTANYL [Concomitant]
  6. DILTIAZEM HYDROCHLORIDE [Concomitant]
  7. HYDROMORPHONE HCL [Concomitant]
  8. ONDANSETRON HCL [Concomitant]
  9. PIOGLITAZONE HCL [Concomitant]
  10. GLIMEPIRIDE (GLIMEPIRIED) [Concomitant]

REACTIONS (7)
  - BLOOD PRESSURE INCREASED [None]
  - DISORIENTATION [None]
  - DRUG INTERACTION [None]
  - FALL [None]
  - NAUSEA [None]
  - TREATMENT NONCOMPLIANCE [None]
  - VOMITING [None]
